FAERS Safety Report 9962137 (Version 1)
Quarter: 2014Q1

REPORT INFORMATION
  Report Type: Report from Study
  Country: US (occurrence: US)
  Receive Date: 20140305
  Receipt Date: 20140305
  Transmission Date: 20141002
  Serious: No
  Sender: FDA-Public Use
  Company Number: US-ABBVIE-13P-163-1110491-00

PATIENT
  Sex: Female

DRUGS (11)
  1. HUMIRA [Suspect]
     Indication: RHEUMATOID ARTHRITIS
  2. METHOTREXATE [Concomitant]
     Indication: PRODUCT USED FOR UNKNOWN INDICATION
  3. FOLIC ACID [Concomitant]
     Indication: PRODUCT USED FOR UNKNOWN INDICATION
  4. NASOCORT SPRAY [Concomitant]
     Indication: HYPERSENSITIVITY
  5. OMEPRAZOLE [Concomitant]
     Indication: GASTROOESOPHAGEAL REFLUX DISEASE
  6. TRAZODONE [Concomitant]
     Indication: ANXIETY
  7. DICLOFENAC [Concomitant]
     Indication: PAIN
  8. CITALOPRAM [Concomitant]
     Indication: DEPRESSION
  9. CALCIUM [Concomitant]
     Indication: SUPPLEMENTATION THERAPY
  10. VITAMIN E [Concomitant]
     Indication: SUPPLEMENTATION THERAPY
     Dosage: ONCE DAILY
  11. VITAMIN D [Concomitant]
     Indication: SUPPLEMENTATION THERAPY
     Dosage: ONCE DAILY

REACTIONS (4)
  - Nasal congestion [Not Recovered/Not Resolved]
  - Productive cough [Not Recovered/Not Resolved]
  - Sputum discoloured [Not Recovered/Not Resolved]
  - Ear discomfort [Not Recovered/Not Resolved]
